FAERS Safety Report 10244396 (Version 1)
Quarter: 2014Q1

REPORT INFORMATION
  Report Type: Spontaneous
  Country: US (occurrence: None)
  Receive Date: 20140306
  Receipt Date: 20140306
  Transmission Date: 20141002
  Serious: Yes (Other)
  Sender: FDA-Public Use
  Company Number: 163-21880-13011866

PATIENT
  Age: 81 Year
  Sex: Male

DRUGS (14)
  1. REVLIMID (LENALIDOMIDE) (5 MILLIGRAM, CAPSULES) [Suspect]
     Indication: MYELODYSPLASTIC SYNDROME
     Route: 048
     Dates: start: 20121213, end: 20130107
  2. PROCRIT (ERYTHROPOIETIN) (UNKNOWN) [Concomitant]
  3. ALBUTEROL (SALBUTAMOL) (INHALANT) [Concomitant]
  4. ALLOPURINOL (TABLETS [Concomitant]
  5. BUDESONIDE (INHALANT) [Concomitant]
  6. CEPHALEXIN (CAPSULES) [Concomitant]
  7. CODEINE/ACETAMINOPHEN (PANADEINE CO) (TALBETS) [Concomitant]
  8. EPOETIN (EPOETIN ALFA) (INJECTION) [Concomitant]
  9. FUROSEMIDE (TALBETS) [Concomitant]
  10. HYDROCHLOROTHIAZIDE (TABLETS) [Concomitant]
  11. OMEPRAZOLE (CAPSULES) [Concomitant]
  12. PREDNISONE (TABLETS) [Concomitant]
  13. ASPIRIN (ACETYLSALICYLIC ACID) (TABLETS) [Concomitant]
  14. MVI (TABLETS) [Concomitant]

REACTIONS (2)
  - Red blood cell count decreased [None]
  - Haemoglobin decreased [None]
